FAERS Safety Report 6439247-1 (Version None)
Quarter: 2009Q4

REPORT INFORMATION
  Report Type: 
  Country: None (occurrence: None)
  Receive Date: 20091110
  Receipt Date: 20091026
  Transmission Date: 20100525
  Serious: Yes (Death, Hospitalization)
  Sender: FDA-Public Use
  Company Number: 2009AC000239

PATIENT
  Age: 45 Year
  Sex: Female
  Weight: 91 kg

DRUGS (17)
  1. DIGOXIN [Suspect]
  2. GLIPIZIDE [Concomitant]
  3. NEXIUM [Concomitant]
  4. CYMBALTA [Concomitant]
  5. LANTUS [Concomitant]
  6. CRESTOR [Concomitant]
  7. VISTORIL [Concomitant]
  8. METFORMIN HCL [Concomitant]
  9. PREVACID [Concomitant]
  10. METHYLPREDNISOLONE [Concomitant]
  11. INSULIN [Concomitant]
  12. HUMULIN R [Concomitant]
  13. WELLBUTRIN [Concomitant]
  14. NEURONTIN [Concomitant]
  15. HYDROCHLOROTHIAZIDE [Concomitant]
  16. PRAVACHOL [Concomitant]
  17. ACCUPRIL [Concomitant]

REACTIONS (13)
  - AGGRESSION [None]
  - ANXIETY [None]
  - BRADYCARDIA [None]
  - CARDIAC DISORDER [None]
  - CARDIO-RESPIRATORY ARREST [None]
  - CHEST PAIN [None]
  - DYSPNOEA [None]
  - ECONOMIC PROBLEM [None]
  - GROIN PAIN [None]
  - HYPOTENSION [None]
  - MENTAL STATUS CHANGES [None]
  - PAIN [None]
  - UNRESPONSIVE TO STIMULI [None]
